FAERS Safety Report 13245160 (Version 2)
Quarter: 2017Q1

REPORT INFORMATION
  Report Type: Spontaneous
  Country: JP (occurrence: JP)
  Receive Date: 20170216
  Receipt Date: 20170224
  Transmission Date: 20170428
  Serious: Yes (Other)
  Sender: FDA-Public Use
  Company Number: JP-BEH-2017078000

PATIENT
  Age: 18 Month
  Sex: Female

DRUGS (3)
  1. ASPIRIN. [Concomitant]
     Active Substance: ASPIRIN
     Dosage: 30 MG/KG, QD
     Route: 065
  2. HUMAN IMMUNOGLOBULIN IV (INN) [Suspect]
     Active Substance: HUMAN IMMUNOGLOBULIN G
     Dosage: 2000 MG/KG, UNK
     Route: 042
  3. HUMAN IMMUNOGLOBULIN IV (INN) [Suspect]
     Active Substance: HUMAN IMMUNOGLOBULIN G
     Indication: KAWASAKI^S DISEASE
     Dosage: 1000 MG/KG, UNK
     Route: 042

REACTIONS (21)
  - Lymphocytosis [Recovering/Resolving]
  - Evans syndrome [Unknown]
  - Drug reaction with eosinophilia and systemic symptoms [Recovering/Resolving]
  - Face oedema [Unknown]
  - Pyrexia [Recovered/Resolved]
  - Hyperaemia [Unknown]
  - Lymphadenopathy [Unknown]
  - Hyperbilirubinaemia [Unknown]
  - Rash [Recovering/Resolving]
  - Hepatosplenomegaly [Unknown]
  - Pigmentation disorder [Recovering/Resolving]
  - Rash maculo-papular [Recovering/Resolving]
  - Liver function test abnormal [Recovering/Resolving]
  - Jaundice [Unknown]
  - Rash morbilliform [Recovering/Resolving]
  - Haemolytic anaemia [Unknown]
  - Eosinophilia [Recovering/Resolving]
  - Anaemia [Unknown]
  - Oedema peripheral [Unknown]
  - Induration [Unknown]
  - Thrombocytopenia [Unknown]
